FAERS Safety Report 15366713 (Version 1)
Quarter: 2018Q3

REPORT INFORMATION
  Report Type: Spontaneous
  Country: US (occurrence: US)
  Receive Date: 20180901
  Receipt Date: 20180901
  Transmission Date: 20181010
  Serious: Yes (Disabling)
  Sender: FDA-Public Use
  Company Number: None

PATIENT
  Age: 72 Year
  Sex: Female
  Weight: 90 kg

DRUGS (10)
  1. SPIRONOLACTONE. [Concomitant]
     Active Substance: SPIRONOLACTONE
  2. CIPROFLOXIN [Suspect]
     Active Substance: CIPROFLOXACIN
     Indication: INFECTION
     Route: 048
     Dates: start: 20180326, end: 20180402
  3. CLOBETASOL [Concomitant]
     Active Substance: CLOBETASOL
  4. FLONASE [Concomitant]
     Active Substance: FLUTICASONE PROPIONATE
  5. TURMERIC [Concomitant]
     Active Substance: HERBALS\TURMERIC
  6. PEPCID COMPLETE [Concomitant]
     Active Substance: CALCIUM CARBONATE\FAMOTIDINE\MAGNESIUM HYDROXIDE
  7. BENADRYL [Concomitant]
     Active Substance: DIPHENHYDRAMINE HYDROCHLORIDE
  8. ASPERIN [Concomitant]
  9. MUPIROCIN. [Concomitant]
     Active Substance: MUPIROCIN
  10. ALLEGRA [Concomitant]
     Active Substance: FEXOFENADINE HYDROCHLORIDE

REACTIONS (5)
  - Gastrointestinal disorder [None]
  - Proctitis ulcerative [None]
  - Gastrointestinal motility disorder [None]
  - Hypoacusis [None]
  - Discomfort [None]

NARRATIVE: CASE EVENT DATE: 20180326
